FAERS Safety Report 9931415 (Version 3)
Quarter: 2014Q2

REPORT INFORMATION
  Report Type: Spontaneous
  Country: GB (occurrence: GB)
  Receive Date: 20140228
  Receipt Date: 20140523
  Transmission Date: 20141212
  Serious: Yes (Hospitalization, Other)
  Sender: FDA-Public Use
  Company Number: GB-BRISTOL-MYERS SQUIBB COMPANY-20306189

PATIENT
  Age: 84 Year
  Sex: Female

DRUGS (11)
  1. ELIQUIS [Suspect]
     Indication: ATRIAL FIBRILLATION
     Route: 048
     Dates: start: 20131204, end: 20140103
  2. ELIQUIS [Suspect]
     Indication: CEREBROVASCULAR ACCIDENT
     Route: 048
     Dates: start: 20131204, end: 20140103
  3. WARFARIN SODIUM [Suspect]
     Indication: ATRIAL FIBRILLATION
     Dosage: RESTARTED ON 06JAN2014
     Dates: start: 201105
  4. WARFARIN SODIUM [Suspect]
     Indication: CEREBROVASCULAR ACCIDENT
     Dosage: RESTARTED ON 06JAN2014
     Dates: start: 201105
  5. FUROSEMIDE [Suspect]
  6. LANSOPRAZOLE [Concomitant]
  7. NICORANDIL [Concomitant]
  8. DOXAZOSIN [Concomitant]
  9. EZETIMIBE [Concomitant]
  10. FELODIPINE [Concomitant]
     Dosage: MR TABS
  11. ISOSORBIDE MONONITRATE [Concomitant]
     Dosage: MR TABS

REACTIONS (2)
  - Ischaemic stroke [Unknown]
  - Renal impairment [Unknown]
